FAERS Safety Report 7758176-4 (Version None)
Quarter: 2011Q3

REPORT INFORMATION
  Report Type: 
  Country: None (occurrence: None)
  Receive Date: 20110919
  Receipt Date: 20110912
  Transmission Date: 20111222
  Serious: No
  Sender: FDA-Public Use
  Company Number: US-BIOGENIDEC-2011BI034900

PATIENT
  Sex: Female

DRUGS (2)
  1. AVONEX [Suspect]
     Indication: MULTIPLE SCLEROSIS
     Route: 030
     Dates: start: 20080402
  2. AVONEX [Suspect]
     Route: 030
     Dates: start: 19980701, end: 20070815

REACTIONS (4)
  - PARAESTHESIA [None]
  - PERONEAL NERVE PALSY [None]
  - CENTRAL NERVOUS SYSTEM LESION [None]
  - MUSCULOSKELETAL STIFFNESS [None]
